FAERS Safety Report 10076759 (Version 2)
Quarter: 2014Q2

REPORT INFORMATION
  Report Type: Spontaneous
  Country: JP (occurrence: JP)
  Receive Date: 20140414
  Receipt Date: 20140421
  Transmission Date: 20141212
  Serious: Yes (Other)
  Sender: FDA-Public Use
  Company Number: JP-TAKEDA-2014TJP004882

PATIENT
  Sex: Male

DRUGS (1)
  1. ACTOS TABLETS 30 [Suspect]
     Indication: DIABETES MELLITUS
     Dosage: 15 MG, 1 DAYS
     Route: 048

REACTIONS (1)
  - Renal cancer [Unknown]
